FAERS Safety Report 8029907-3 (Version None)
Quarter: 2011Q4

REPORT INFORMATION
  Report Type: 
  Country: None (occurrence: None)
  Receive Date: 20111130
  Receipt Date: 20110504
  Transmission Date: 20120403
  Serious: Yes (Other)
  Sender: FDA-Public Use
  Company Number: US201105001057

PATIENT
  Age: 51 Year
  Sex: Female

DRUGS (7)
  1. MOBIC [Concomitant]
  2. VALSARTAN [Concomitant]
  3. PRAVASTATIN [Concomitant]
  4. VARENICLINE (VARENICLINE) [Concomitant]
  5. BYETTA [Suspect]
     Indication: TYPE 2 DIABETES MELLITUS
     Dosage: 5 UG, BID, SUBCUTANEOUS, 10 UG, BID, SUBCUTANEOUS
     Route: 058
     Dates: start: 20110301, end: 20110401
  6. BYETTA [Suspect]
     Indication: TYPE 2 DIABETES MELLITUS
     Dosage: 5 UG, BID, SUBCUTANEOUS, 10 UG, BID, SUBCUTANEOUS
     Route: 058
     Dates: start: 20110401, end: 20110429
  7. ACTOPLUS MET (METFORMIN HYDROCHLORIDE, PIOGLITAZONE HYDROCHLORIDE) [Concomitant]

REACTIONS (5)
  - VOMITING [None]
  - NAUSEA [None]
  - PANCREATITIS [None]
  - LIPASE INCREASED [None]
  - ABDOMINAL PAIN UPPER [None]
